FAERS Safety Report 7459896-1 (Version None)
Quarter: 2011Q2

REPORT INFORMATION
  Report Type: 
  Country: None (occurrence: None)
  Receive Date: 20110427
  Receipt Date: 20110412
  Transmission Date: 20111010
  Serious: Yes (Other)
  Sender: FDA-Public Use
  Company Number: BR-001673

PATIENT
  Sex: Male
  Weight: 22.8 kg

DRUGS (5)
  1. NAGLAZYME [Suspect]
     Indication: MUCOPOLYSACCHARIDOSIS VI
     Dosage: 20 MG 1X/WEEK INTRAVENOUS DRIP)
     Route: 041
     Dates: start: 20040909, end: 20110405
  2. NAGLAZYME [Suspect]
     Indication: MUCOPOLYSACCHARIDOSIS VI
     Dosage: 20 MG 1X/WEEK INTRAVENOUS DRIP)
     Route: 041
     Dates: start: 20110412
  3. BACTERIOSTATIC SODIUM CHLORIDE 0.9% [Concomitant]
  4. IBUPROFEN [Concomitant]
  5. FENOTEROL [Concomitant]

REACTIONS (2)
  - RHINITIS [None]
  - VIRAL UPPER RESPIRATORY TRACT INFECTION [None]
